FAERS Safety Report 13628488 (Version 4)
Quarter: 2018Q2

REPORT INFORMATION
  Report Type: Spontaneous
  Country: CA (occurrence: CA)
  Receive Date: 20170608
  Receipt Date: 20180413
  Transmission Date: 20180711
  Serious: Yes (Hospitalization, Other)
  Sender: FDA-Public Use
  Company Number: CA-PFIZER INC-2014165714

PATIENT
  Age: 63 Year
  Sex: Male
  Weight: 74 kg

DRUGS (13)
  1. TERBINAFINE. [Interacting]
     Active Substance: TERBINAFINE
     Indication: ONYCHOMYCOSIS
     Dosage: 250 MG, DAILY (DAY-49), INTENDED DURATION OF 90 DAYS
     Route: 048
     Dates: start: 20090805, end: 20090924
  2. FUROSEMIDE. [Concomitant]
     Active Substance: FUROSEMIDE
     Dosage: 40 MG/DAY
     Route: 048
  3. DOMPERIDONE [Concomitant]
     Active Substance: DOMPERIDONE
     Dosage: 40 MG/DAY
     Route: 048
  4. METOPROLOL TARTRATE. [Interacting]
     Active Substance: METOPROLOL TARTRATE
     Dosage: 100 MG, DAILY
     Route: 048
     Dates: end: 20090923
  5. CLOPIDOGREL [Concomitant]
     Active Substance: CLOPIDOGREL BISULFATE
     Dosage: 75 MG/DAY
     Route: 048
  6. POTASSIUM CHLORIDE. [Concomitant]
     Active Substance: POTASSIUM CHLORIDE
     Dosage: 24 MEQ/DAY
     Route: 048
  7. ACETYLSALICYLIC ACID [Concomitant]
     Active Substance: ASPIRIN
     Dosage: 80 MG/DAY
     Route: 048
  8. TRANDOLAPRIL. [Concomitant]
     Active Substance: TRANDOLAPRIL
     Dosage: 2 MG/DAY
     Route: 048
  9. CICLOPIROX. [Concomitant]
     Active Substance: CICLOPIROX
     Dosage: 1 %, UNK
     Route: 061
  10. METOPROLOL TARTRATE. [Suspect]
     Active Substance: METOPROLOL TARTRATE
     Indication: CORONARY ARTERY DISEASE
     Dosage: 200 MG, DAILY
     Route: 048
  11. METOPROLOL TARTRATE. [Interacting]
     Active Substance: METOPROLOL TARTRATE
     Dosage: 75 MG, DAILY
     Route: 048
     Dates: start: 20090929, end: 20090930
  12. ATORVASTATIN [Concomitant]
     Active Substance: ATORVASTATIN
     Dosage: 80 MG/DAY
     Route: 048
  13. ACETAMINOPHEN. [Concomitant]
     Active Substance: ACETAMINOPHEN
     Dosage: 1500 MG/DAY
     Route: 048

REACTIONS (5)
  - Drug interaction [Recovered/Resolved]
  - General physical health deterioration [Recovering/Resolving]
  - Fall [Unknown]
  - Sinus bradycardia [Recovered/Resolved]
  - Confusional state [Recovering/Resolving]

NARRATIVE: CASE EVENT DATE: 2009
